FAERS Safety Report 5875751-2 (Version None)
Quarter: 2008Q3

REPORT INFORMATION
  Report Type: 
  Country: None (occurrence: None)
  Receive Date: 20080905
  Receipt Date: 20080827
  Transmission Date: 20090109
  Serious: Yes (Other)
  Sender: FDA-Public Use
  Company Number: OMPQ-NO-0809S-0745

PATIENT
  Age: 76 Year
  Sex: Male

DRUGS (4)
  1. OMNIPAQUE 140 [Suspect]
     Indication: DRUG USE FOR UNKNOWN INDICATION
     Dosage: 80 ML, SINGLE DOSE, I.V.
     Route: 042
     Dates: start: 20080826, end: 20080826
  2. PARACETAMOL (CALONAL) [Concomitant]
  3. PANCREATIN TRIPLE STRENGTH CAP [Concomitant]
  4. BIOFERMIN [Concomitant]

REACTIONS (2)
  - HYPOPNOEA [None]
  - LOSS OF CONSCIOUSNESS [None]
